FAERS Safety Report 14107691 (Version 1)
Quarter: 2017Q4

REPORT INFORMATION
  Report Type: Spontaneous
  Country: FR (occurrence: FR)
  Receive Date: 20171019
  Receipt Date: 20171019
  Transmission Date: 20180321
  Serious: Yes (Death)
  Sender: FDA-Public Use
  Company Number: FR-SA-2017SA200678

PATIENT
  Age: 3 Day
  Sex: Male
  Weight: 2.45 kg

DRUGS (7)
  1. DOPAMINE [Suspect]
     Active Substance: DOPAMINE\DOPAMINE HYDROCHLORIDE
     Route: 065
  2. MORPHINE [Suspect]
     Active Substance: MORPHINE
     Route: 065
  3. URSOLVAN [Suspect]
     Active Substance: URSODIOL
     Route: 064
     Dates: start: 20160225, end: 20160229
  4. OMEPRAZOLE. [Suspect]
     Active Substance: OMEPRAZOLE
     Route: 064
     Dates: start: 20160204, end: 20160229
  5. NOREPINEPHRINE. [Suspect]
     Active Substance: NOREPINEPHRINE
     Route: 065
  6. CEFOTAXIME [Suspect]
     Active Substance: CEFOTAXIME SODIUM
     Route: 065
  7. MIDAZOLAM [Suspect]
     Active Substance: MIDAZOLAM HYDROCHLORIDE
     Route: 065

REACTIONS (7)
  - Lactic acidosis [Fatal]
  - Death neonatal [Fatal]
  - Brain hypoxia [Fatal]
  - Hypotension [Fatal]
  - Neonatal anuria [Fatal]
  - Renal failure neonatal [Fatal]
  - Foetal arrhythmia [Fatal]

NARRATIVE: CASE EVENT DATE: 20160306
